FAERS Safety Report 23098284 (Version 1)
Quarter: 2023Q4

REPORT INFORMATION
  Report Type: Spontaneous
  Country: US (occurrence: US)
  Receive Date: 20231023
  Receipt Date: 20231023
  Transmission Date: 20240109
  Serious: No
  Sender: FDA-Public Use
  Company Number: US-TARO PHARMACEUTICALS USA INC.-2023TAR00994

PATIENT

DRUGS (1)
  1. CLINDAMYCIN [Suspect]
     Active Substance: CLINDAMYCIN
     Indication: Acne
     Dosage: UNK, ABOUT 1 MONTH AGO, APPLY TO AFFECTED AREA
     Route: 061
     Dates: start: 202308, end: 20230913

REACTIONS (1)
  - Miliaria [Recovering/Resolving]
